FAERS Safety Report 23673004 (Version 1)
Quarter: 2024Q1

REPORT INFORMATION
  Report Type: Spontaneous
  Country: FR (occurrence: FR)
  Receive Date: 20240326
  Receipt Date: 20240326
  Transmission Date: 20240410
  Serious: Yes (Hospitalization)
  Sender: FDA-Public Use
  Company Number: FR-SUN PHARMACEUTICAL INDUSTRIES LTD-2024RR-438519

PATIENT
  Age: 21 Year
  Sex: Female

DRUGS (3)
  1. FLUOXETINE [Suspect]
     Active Substance: FLUOXETINE HYDROCHLORIDE
     Indication: Depression
     Dosage: 180 MILLIGRAM, IN TOTAL
     Route: 048
     Dates: start: 20231208
  2. OLANZAPINE [Suspect]
     Active Substance: OLANZAPINE
     Indication: Product used for unknown indication
     Dosage: 45 MILLIGRAM, IN TOTAL
     Route: 048
     Dates: start: 20231208
  3. LITHIUM [Suspect]
     Active Substance: LITHIUM
     Indication: Depression
     Dosage: 400 MILLIGRAM, IN TOTAL
     Route: 048
     Dates: start: 20231208

REACTIONS (4)
  - Diarrhoea [Recovered/Resolved]
  - Poisoning deliberate [Recovered/Resolved]
  - Antipsychotic drug level increased [Recovered/Resolved]
  - Tremor [Recovered/Resolved]

NARRATIVE: CASE EVENT DATE: 20231208
